FAERS Safety Report 23184484 (Version 2)
Quarter: 2023Q4

REPORT INFORMATION
  Report Type: Other
  Country: PE (occurrence: None)
  Receive Date: 20231115
  Receipt Date: 20231117
  Transmission Date: 20240109
  Serious: Yes (Death, Hospitalization)
  Sender: FDA-Public Use
  Company Number: PE-ROCHE-3455576

PATIENT
  Age: 44 Year
  Sex: Female

DRUGS (12)
  1. RITUXIMAB [Suspect]
     Active Substance: RITUXIMAB
     Indication: Superior vena cava occlusion
     Route: 042
  2. RITUXIMAB [Suspect]
     Active Substance: RITUXIMAB
     Indication: Adult T-cell lymphoma/leukaemia
  3. ETOPOSIDE [Suspect]
     Active Substance: ETOPOSIDE
     Indication: Superior vena cava occlusion
     Route: 065
  4. ETOPOSIDE [Suspect]
     Active Substance: ETOPOSIDE
     Indication: Adult T-cell lymphoma/leukaemia
  5. CYCLOPHOSPHAMIDE [Suspect]
     Active Substance: CYCLOPHOSPHAMIDE
     Indication: Superior vena cava occlusion
     Route: 065
  6. CYCLOPHOSPHAMIDE [Suspect]
     Active Substance: CYCLOPHOSPHAMIDE
     Indication: Adult T-cell lymphoma/leukaemia
  7. VINCRISTINE [Suspect]
     Active Substance: VINCRISTINE
     Indication: Superior vena cava occlusion
     Route: 065
  8. VINCRISTINE [Suspect]
     Active Substance: VINCRISTINE
     Indication: Adult T-cell lymphoma/leukaemia
  9. ADRIAMYCIN [Suspect]
     Active Substance: DOXORUBICIN HYDROCHLORIDE
     Indication: Superior vena cava occlusion
     Route: 065
  10. ADRIAMYCIN [Suspect]
     Active Substance: DOXORUBICIN HYDROCHLORIDE
     Indication: Adult T-cell lymphoma/leukaemia
  11. DEXAMETHASONE [Suspect]
     Active Substance: DEXAMETHASONE
     Indication: Superior vena cava occlusion
     Route: 065
  12. DEXAMETHASONE [Suspect]
     Active Substance: DEXAMETHASONE
     Indication: Adult T-cell lymphoma/leukaemia

REACTIONS (2)
  - COVID-19 [Fatal]
  - Off label use [Fatal]
